FAERS Safety Report 4510050-2 (Version None)
Quarter: 2004Q4

REPORT INFORMATION
  Report Type: 
  Country: None (occurrence: None)
  Receive Date: 20041119
  Receipt Date: 20041103
  Transmission Date: 20050328
  Serious: Yes (Hospitalization)
  Sender: FDA-Public Use
  Company Number: 2004242702DE

PATIENT
  Age: 60 Year
  Sex: Female
  Weight: 71.7 kg

DRUGS (3)
  1. EPIRUBICIN [Suspect]
     Indication: BREAST CANCER
     Dosage: 102 MG, CYLIC, IV
     Route: 042
     Dates: start: 20041020, end: 20041027
  2. FLUOROURACIL [Suspect]
     Indication: BREAST CANCER
     Dosage: 850 MG, CYLIC, IV
     Route: 042
     Dates: start: 20041020, end: 20041027
  3. CYCLOPHOSPHAMIDE [Suspect]
     Indication: BREAST CANCER
     Dosage: ORAL
     Route: 048
     Dates: start: 20041020

REACTIONS (2)
  - INFLAMMATION OF WOUND [None]
  - WOUND COMPLICATION [None]
